FAERS Safety Report 12335291 (Version 1)
Quarter: 2016Q2

REPORT INFORMATION
  Report Type: Report from Study
  Country: BR (occurrence: BR)
  Receive Date: 20160504
  Receipt Date: 20160504
  Transmission Date: 20160815
  Serious: Yes (Hospitalization, Other)
  Sender: FDA-Public Use
  Company Number: BR-ABBVIE-16K-020-1617585-00

PATIENT
  Age: 35 Year
  Sex: Female
  Weight: 65 kg

DRUGS (3)
  1. HUMIRA [Suspect]
     Active Substance: ADALIMUMAB
     Indication: CROHN^S DISEASE
     Dosage: 80MG OR 160MG, LOADING DOSE WEEK 0
     Route: 058
     Dates: start: 20150324, end: 20150324
  2. HUMIRA [Suspect]
     Active Substance: ADALIMUMAB
     Route: 058
     Dates: end: 201604
  3. HUMIRA [Suspect]
     Active Substance: ADALIMUMAB
     Dosage: WEEK 1
     Route: 058
     Dates: start: 20150331, end: 20150331

REACTIONS (3)
  - Flavivirus infection [Recovering/Resolving]
  - Exposure during pregnancy [Unknown]
  - Ectopic pregnancy [Recovered/Resolved]

NARRATIVE: CASE EVENT DATE: 20160225
